FAERS Safety Report 7099645-2 (Version None)
Quarter: 2010Q4

REPORT INFORMATION
  Report Type: 
  Country: None (occurrence: None)
  Receive Date: 20101112
  Receipt Date: 20081103
  Transmission Date: 20110411
  Serious: No
  Sender: FDA-Public Use
  Company Number: US-KINGPHARMUSA00001-K200801263

PATIENT
  Age: 37 Year
  Sex: Male
  Weight: 79.819 kg

DRUGS (3)
  1. AVINZA [Suspect]
     Indication: PAIN MANAGEMENT
     Dosage: 90 MG, QD
     Route: 048
     Dates: start: 20080601, end: 20080701
  2. AVINZA [Suspect]
     Dosage: 30 MG, QD
     Dates: start: 20070701, end: 20071001
  3. AVINZA [Suspect]
     Dosage: 60 MG, QD
     Dates: start: 20071001, end: 20080601

REACTIONS (3)
  - DYSURIA [None]
  - MICTURITION URGENCY [None]
  - POLLAKIURIA [None]
